FAERS Safety Report 25878722 (Version 1)
Quarter: 2025Q4

REPORT INFORMATION
  Report Type: Report from Study
  Country: EG (occurrence: EG)
  Receive Date: 20251003
  Receipt Date: 20251003
  Transmission Date: 20260117
  Serious: Yes (Other)
  Sender: NOVARTIS
  Company Number: EG-002147023-NVSC2025EG098897

PATIENT
  Sex: Female

DRUGS (2)
  1. KISQALI [Suspect]
     Active Substance: RIBOCICLIB SUCCINATE
     Indication: Breast cancer metastatic
     Dosage: 200 MG, OTHER (STOPPED FOUR MONTHS AGO)
     Route: 048
  2. KISQALI [Suspect]
     Active Substance: RIBOCICLIB SUCCINATE
     Dosage: 200 MG (START DATE: 4 MONTHS AGO)
     Route: 048

REACTIONS (4)
  - Neutropenia [Unknown]
  - Myelosuppression [Unknown]
  - Symptom recurrence [Not Recovered/Not Resolved]
  - Decreased immune responsiveness [Unknown]
